FAERS Safety Report 9881251 (Version 1)
Quarter: 2014Q1

REPORT INFORMATION
  Report Type: Spontaneous
  Country: FR (occurrence: FR)
  Receive Date: 20140207
  Receipt Date: 20140207
  Transmission Date: 20141002
  Serious: Yes (Hospitalization)
  Sender: FDA-Public Use
  Company Number: FR-SA-2014SA012282

PATIENT
  Age: 93 Year
  Sex: Female

DRUGS (2)
  1. STILNOX [Suspect]
     Indication: PRODUCT USED FOR UNKNOWN INDICATION
     Dosage: FILMED SCORED TABS
     Route: 048
     Dates: start: 20130919, end: 20130920
  2. AXEPIM [Suspect]
     Indication: ESCHERICHIA INFECTION
     Dosage: STRENGTH: 2G POWDER FOR SOLUTION FOR INFUSION
     Route: 042
     Dates: start: 20130918, end: 20130924

REACTIONS (3)
  - Encephalopathy [Recovered/Resolved]
  - Dyskinesia [Recovered/Resolved]
  - Bradyphrenia [Recovered/Resolved]
